FAERS Safety Report 5021774-5 (Version None)
Quarter: 2006Q2

REPORT INFORMATION
  Report Type: 
  Country: None (occurrence: None)
  Receive Date: 20060605
  Receipt Date: 20060521
  Transmission Date: 20061013
  Serious: Yes (Hospitalization)
  Sender: FDA-Public Use
  Company Number: 2006PV014112

PATIENT
  Age: 47 Year
  Sex: Female

DRUGS (18)
  1. BYETTA [Suspect]
     Indication: DIABETES MELLITUS NON-INSULIN-DEPENDENT
     Dosage: 10 MCG;BID;SC
     Route: 058
     Dates: start: 20060201
  2. APAP TAB [Concomitant]
  3. CYMBALTA [Concomitant]
  4. VASOTEC [Concomitant]
  5. LEXAPRO [Concomitant]
  6. NEURONTIN [Concomitant]
  7. AMARYL [Concomitant]
  8. NOVOLOG [Concomitant]
  9. NPH (PRN) [Concomitant]
  10. INSULIN R (PRN) [Concomitant]
  11. SYNTHROID [Concomitant]
  12. REGLAN [Concomitant]
  13. MONISTAT [Concomitant]
  14. PROTONIX [Concomitant]
  15. MIRALAX [Concomitant]
  16. AVANDIA [Concomitant]
  17. ULTRAM [Concomitant]
  18. OXYCODONE HCL [Concomitant]

REACTIONS (8)
  - ABDOMINAL PAIN [None]
  - CONDITION AGGRAVATED [None]
  - DIABETES MELLITUS INADEQUATE CONTROL [None]
  - DIARRHOEA [None]
  - FIBROMYALGIA [None]
  - FUNGAL INFECTION [None]
  - GASTRIC DISORDER [None]
  - GASTROENTERITIS VIRAL [None]
